FAERS Safety Report 6435870-9 (Version None)
Quarter: 2009Q4

REPORT INFORMATION
  Report Type: 
  Country: None (occurrence: None)
  Receive Date: 20091111
  Receipt Date: 20091102
  Transmission Date: 20100525
  Serious: Yes (Other)
  Sender: FDA-Public Use
  Company Number: US-JNJFOC-20090807275

PATIENT
  Sex: Female
  Weight: 89 kg

DRUGS (5)
  1. REMICADE [Suspect]
     Indication: RHEUMATOID ARTHRITIS
     Dosage: 1ST INFUSION AT WEEK 0; DOSE 3 VIALS  HAD 2 DOSES
     Route: 042
     Dates: start: 20090728, end: 20090813
  2. TOPAMAX [Concomitant]
     Indication: MIGRAINE
  3. ARAVA [Concomitant]
     Dosage: TO PRESENT
  4. BENADRYL [Concomitant]
     Indication: PREMEDICATION
     Route: 048
     Dates: start: 20090728, end: 20090813
  5. TYLENOL [Concomitant]
     Indication: PREMEDICATION
     Route: 048
     Dates: start: 20090728, end: 20090813

REACTIONS (5)
  - DIARRHOEA [None]
  - FACIAL PALSY [None]
  - HEADACHE [None]
  - HYPOAESTHESIA FACIAL [None]
  - INFUSION RELATED REACTION [None]
